FAERS Safety Report 11211387 (Version 1)
Quarter: 2015Q2

REPORT INFORMATION
  Report Type: Spontaneous
  Country: US (occurrence: None)
  Receive Date: 20150619
  Receipt Date: 20150619
  Transmission Date: 20150821
  Serious: Yes (Disabling, Other)
  Sender: FDA-Public Use
  Company Number: None

PATIENT
  Age: 59 Year
  Sex: Female
  Weight: 68.04 kg

DRUGS (6)
  1. VITAMIN D [Concomitant]
     Active Substance: CHOLECALCIFEROL
  2. VITAMINS [Concomitant]
     Active Substance: VITAMINS
  3. VITAMIN C [Concomitant]
     Active Substance: ASCORBIC ACID
  4. ESTRADIOL TRANSDERMAL SYSTEM [Suspect]
     Active Substance: ESTRADIOL
     Indication: MENOPAUSE
     Dosage: 1  AME VIVELLE DOT  APPLIED AS MEDICATION PATCH TO SKIN
     Dates: start: 20150605, end: 20150617
  5. VIVELLE DOT .025 TRANSDERMAL PATCH [Concomitant]
  6. VITAMIN E [Concomitant]
     Active Substance: .ALPHA.-TOCOPHEROL

REACTIONS (15)
  - Nausea [None]
  - Flatulence [None]
  - Dyspnoea [None]
  - Product substitution issue [None]
  - Abdominal distension [None]
  - Insomnia [None]
  - Discomfort [None]
  - Chest pain [None]
  - Chest discomfort [None]
  - Headache [None]
  - Pain [None]
  - Drug ineffective [None]
  - Sensory disturbance [None]
  - Feeling abnormal [None]
  - Product quality issue [None]

NARRATIVE: CASE EVENT DATE: 20150616
